FAERS Safety Report 9569029 (Version 1)
Quarter: 2013Q3

REPORT INFORMATION
  Report Type: Spontaneous
  Country: US (occurrence: US)
  Receive Date: 20130930
  Receipt Date: 20130930
  Transmission Date: 20140515
  Serious: No
  Sender: FDA-Public Use
  Company Number: US-AMGEN-USASP2013060744

PATIENT
  Age: 55 Year
  Sex: Female
  Weight: 74.83 kg

DRUGS (14)
  1. ENBREL [Suspect]
     Indication: PRODUCT USED FOR UNKNOWN INDICATION
     Dosage: 50 MG, QWK
     Route: 058
  2. ENBREL [Suspect]
  3. CENTRUM                            /07499601/ [Concomitant]
     Dosage: UNK
  4. ZOLOFT [Concomitant]
     Dosage: 50 MG, UNK
  5. METHOTREXATE [Concomitant]
     Dosage: 2.5 MG, UNK
  6. AVAPRO [Concomitant]
     Dosage: 75 MG, UNK
  7. METOPROLOL TARTRATE [Concomitant]
     Dosage: 100 MG, UNK
  8. CLONAZEPAM [Concomitant]
     Dosage: 0.5 MG, UNK
  9. OMEPRAZOLE [Concomitant]
     Dosage: 20 MG, UNK
  10. SIMVASTATIN [Concomitant]
     Dosage: 10 MG, UNK
  11. CITRACAL PLUS [Concomitant]
     Dosage: UNK
  12. WARFARIN [Concomitant]
     Dosage: 1 MG, UNK
  13. DHA OMEGA 3 [Concomitant]
     Dosage: 100 MG, UNK
  14. FLEXERIL                           /00428402/ [Concomitant]
     Dosage: 5 MG, UNK

REACTIONS (1)
  - Injection site discolouration [Recovered/Resolved]
